FAERS Safety Report 25172226 (Version 1)
Quarter: 2025Q2

REPORT INFORMATION
  Report Type: Spontaneous
  Country: US (occurrence: US)
  Receive Date: 20250408
  Receipt Date: 20250408
  Transmission Date: 20250716
  Serious: Yes (Death)
  Sender: MYLAN
  Company Number: US-MYLANLABS-2025M1029001

PATIENT
  Age: 39 Year
  Sex: Male

DRUGS (4)
  1. DOXORUBICIN [Suspect]
     Active Substance: DOXORUBICIN
     Indication: Haemophagocytic lymphohistiocytosis
  2. RITUXIMAB [Suspect]
     Active Substance: RITUXIMAB
     Indication: Haemophagocytic lymphohistiocytosis
  3. VINBLASTINE [Suspect]
     Active Substance: VINBLASTINE
     Indication: Haemophagocytic lymphohistiocytosis
  4. DACARBAZINE [Suspect]
     Active Substance: DACARBAZINE
     Indication: Haemophagocytic lymphohistiocytosis

REACTIONS (2)
  - Drug ineffective for unapproved indication [Fatal]
  - Off label use [Unknown]
